FAERS Safety Report 13630444 (Version 1)
Quarter: 2017Q2

REPORT INFORMATION
  Report Type: Spontaneous
  Country: US (occurrence: US)
  Receive Date: 20170531
  Receipt Date: 20170531
  Transmission Date: 20170830
  Serious: No
  Sender: FDA-Public Use
  Company Number: US-ASTELLAS-1303168

PATIENT
  Age: 83 Year
  Sex: Male

DRUGS (2)
  1. MEGESTROL [Concomitant]
     Active Substance: MEGESTROL
     Indication: WEIGHT DECREASED
  2. TARCEVA [Suspect]
     Active Substance: ERLOTINIB HYDROCHLORIDE
     Indication: LUNG NEOPLASM MALIGNANT
     Dosage: QD
     Route: 048
     Dates: start: 20131101

REACTIONS (4)
  - Eye irritation [Unknown]
  - Weight decreased [Unknown]
  - Haematochezia [Unknown]
  - Blood urine present [Unknown]

NARRATIVE: CASE EVENT DATE: 201311
